FAERS Safety Report 8342858-X (Version None)
Quarter: 2012Q2

REPORT INFORMATION
  Report Type: 
  Country: None (occurrence: None)
  Receive Date: 20120508
  Receipt Date: 20120501
  Transmission Date: 20120825
  Serious: No
  Sender: FDA-Public Use
  Company Number: US-PFIZER INC-2012107833

PATIENT
  Sex: Female

DRUGS (1)
  1. VFEND [Suspect]
     Dosage: 200 MG, 3X/DAY
     Dates: start: 20120424

REACTIONS (4)
  - ASTHENIA [None]
  - FATIGUE [None]
  - FUNGAL INFECTION [None]
  - HEARING IMPAIRED [None]
